FAERS Safety Report 7905326-2 (Version None)
Quarter: 2011Q4

REPORT INFORMATION
  Report Type: 
  Country: None (occurrence: None)
  Receive Date: 20111109
  Receipt Date: 20111027
  Transmission Date: 20120403
  Serious: Yes (Death)
  Sender: FDA-Public Use
  Company Number: US-RB-033714-11

PATIENT
  Sex: Male
  Weight: 72 kg

DRUGS (3)
  1. CHLORAL HYDRATE [Suspect]
     Indication: PRODUCT USED FOR UNKNOWN INDICATION
     Dosage: UNKNOWN DOSE
     Route: 065
  2. PRAMIPEXOLE DIHYDROCHLORIDE [Concomitant]
     Indication: RESTLESS LEGS SYNDROME
     Dosage: 1/2 A TABLET, TWICE DAILY
  3. SUBUTEX [Suspect]
     Indication: DRUG DEPENDENCE
     Dosage: UNKNOWN DOSE
     Route: 065
     Dates: end: 20110726

REACTIONS (2)
  - COMPLETED SUICIDE [None]
  - TOXICITY TO VARIOUS AGENTS [None]
